FAERS Safety Report 8113182-5 (Version None)
Quarter: 2012Q1

REPORT INFORMATION
  Report Type: 
  Country: None (occurrence: None)
  Receive Date: 20120203
  Receipt Date: 20120124
  Transmission Date: 20120608
  Serious: Yes (Hospitalization, Disabling, Other)
  Sender: FDA-Public Use
  Company Number: PHHY2011JP103609

PATIENT
  Sex: Male
  Weight: 88 kg

DRUGS (12)
  1. RASILEZ [Suspect]
     Indication: HYPERTENSION
     Dosage: 150 MG, DAILY
     Route: 048
     Dates: start: 20091117
  2. ALLOPURINOL [Concomitant]
     Indication: HYPERURICAEMIA
     Dosage: 100 MG, UNK
     Route: 048
     Dates: start: 20040101
  3. CARVEDILOL [Concomitant]
     Indication: HYPERTENSION
     Dosage: 20 MG, UNK
     Route: 048
     Dates: start: 20041102
  4. ALDOMET [Concomitant]
     Indication: HYPERTENSION
     Dosage: 250 MG, UNK
     Route: 048
     Dates: start: 20080129, end: 20110704
  5. PRAVASTATIN SODIUM [Concomitant]
     Indication: DYSLIPIDAEMIA
     Dosage: 10 MG, UNK
     Route: 048
     Dates: start: 20040101
  6. COMELIAN [Concomitant]
     Indication: GLOMERULONEPHRITIS
     Dosage: 300 MG, UNK
     Route: 048
     Dates: start: 20040101, end: 20110704
  7. ANGIOTENSIN CONVERTING ENZYME [Concomitant]
  8. DIOVAN [Suspect]
     Indication: HYPERTENSION
     Dosage: 160 MG, DAILY
     Route: 048
     Dates: start: 20050927
  9. ACECOL [Suspect]
     Indication: HYPERTENSION
     Dosage: 4 MG, UNK
     Route: 048
     Dates: start: 20050726, end: 20110117
  10. ADALAT [Concomitant]
     Indication: HYPERTENSION
     Dosage: 60 MG, UNK
     Route: 048
     Dates: start: 20050726
  11. BASEN [Concomitant]
     Indication: DIABETES MELLITUS
     Dosage: 0.6 MG, UNK
     Route: 048
     Dates: start: 20050419
  12. ANGIOTENSIN RECEPTOR BLOCKER [Concomitant]

REACTIONS (3)
  - RENAL FAILURE [None]
  - NEPHROGENIC ANAEMIA [None]
  - AZOTAEMIA [None]
